FAERS Safety Report 4507488-6 (Version None)
Quarter: 2004Q4

REPORT INFORMATION
  Report Type: 
  Country: None (occurrence: None)
  Receive Date: 20041118
  Receipt Date: 20041105
  Transmission Date: 20050328
  Serious: Yes (Disabling)
  Sender: FDA-Public Use
  Company Number: 2004079613

PATIENT
  Age: 50 Year
  Sex: Male
  Weight: 82.5547 kg

DRUGS (2)
  1. LIPITOR [Suspect]
     Indication: LOW DENSITY LIPOPROTEIN INCREASED
     Dosage: 10 MG (10 MG, 1 IN 1 D), ORAL
     Route: 048
  2. METFORMIN HCL [Concomitant]

REACTIONS (4)
  - APATHY [None]
  - DEPRESSION [None]
  - FATIGUE [None]
  - LETHARGY [None]
